FAERS Safety Report 7469484-9 (Version None)
Quarter: 2011Q2

REPORT INFORMATION
  Report Type: 
  Country: None (occurrence: None)
  Receive Date: 20110506
  Receipt Date: 20110506
  Transmission Date: 20111010
  Serious: Yes (Disabling)
  Sender: FDA-Public Use
  Company Number: None

PATIENT
  Sex: Female
  Weight: 56.6996 kg

DRUGS (1)
  1. CLINDAMYCIN [Suspect]
     Indication: ENDODONTIC PROCEDURE
     Dosage: 150 MG - 4 PER DAY 150 MG - 4XPER DAY
     Dates: start: 20050902

REACTIONS (4)
  - MUSCLE SPASMS [None]
  - IRRITABLE BOWEL SYNDROME [None]
  - BLADDER PROLAPSE [None]
  - DIARRHOEA [None]
